FAERS Safety Report 7805536-9 (Version None)
Quarter: 2011Q4

REPORT INFORMATION
  Report Type: 
  Country: None (occurrence: None)
  Receive Date: 20111010
  Receipt Date: 20110929
  Transmission Date: 20120403
  Serious: Yes (Hospitalization, Other)
  Sender: FDA-Public Use
  Company Number: US-ASTRAZENECA-2010SE41935

PATIENT
  Age: 660 Month
  Sex: Male
  Weight: 72.6 kg

DRUGS (18)
  1. NEXIUM [Suspect]
     Indication: EROSIVE OESOPHAGITIS
     Dosage: SUPPOSED TO BE TAKING NEXIUM TWICE A DAY BUT HE HAS CUT BACK
     Route: 048
  2. NEXIUM [Suspect]
     Route: 048
     Dates: start: 19960101
  3. SEROQUEL [Suspect]
     Indication: AGITATION
     Route: 048
  4. CRESTOR [Suspect]
     Indication: HYPERCHOLESTEROLAEMIA
     Route: 048
     Dates: start: 20030101
  5. NEXIUM [Suspect]
     Indication: GASTROOESOPHAGEAL REFLUX DISEASE
     Dosage: SUPPOSED TO BE TAKING NEXIUM TWICE A DAY BUT HE HAS CUT BACK
     Route: 048
  6. NEXIUM [Suspect]
     Indication: BARRETT'S OESOPHAGUS
     Dosage: SUPPOSED TO BE TAKING NEXIUM TWICE A DAY BUT HE HAS CUT BACK
     Route: 048
  7. NEXIUM [Suspect]
     Dosage: SUPPOSED TO BE TAKING NEXIUM TWICE A DAY BUT HE HAS CUT BACK
     Route: 048
  8. SEROQUEL [Suspect]
     Indication: DEPRESSION
     Route: 048
  9. SEROQUEL [Suspect]
     Route: 048
     Dates: start: 20100101
  10. SEROQUEL [Suspect]
     Route: 048
     Dates: start: 20100101
  11. SEROQUEL [Suspect]
     Route: 048
  12. SEROQUEL [Suspect]
     Route: 048
  13. NEXIUM [Suspect]
     Route: 048
     Dates: start: 19960101
  14. SEROQUEL [Suspect]
     Indication: SLEEP DISORDER
     Route: 048
  15. SEROQUEL [Suspect]
     Route: 048
  16. NEXIUM [Suspect]
     Route: 048
     Dates: start: 19960101
  17. NEXIUM [Suspect]
     Route: 048
     Dates: start: 19960101
  18. SEROQUEL [Suspect]
     Route: 048
     Dates: start: 20100101

REACTIONS (8)
  - DRUG INTOLERANCE [None]
  - CARDIAC DISORDER [None]
  - INTENTIONAL DRUG MISUSE [None]
  - MYOCARDIAL INFARCTION [None]
  - ARTERIAL OCCLUSIVE DISEASE [None]
  - WRONG TECHNIQUE IN DRUG USAGE PROCESS [None]
  - GASTROOESOPHAGEAL REFLUX DISEASE [None]
  - CHEST PAIN [None]
